FAERS Safety Report 21847441 (Version 1)
Quarter: 2023Q1

REPORT INFORMATION
  Report Type: Spontaneous
  Country: US (occurrence: None)
  Receive Date: 20230110
  Receipt Date: 20230110
  Transmission Date: 20230417
  Serious: Yes (Other)
  Sender: FDA-Public Use
  Company Number: None

PATIENT
  Sex: Female

DRUGS (12)
  1. MYCOPHENOLIC ACID [Suspect]
     Active Substance: MYCOPHENOLIC ACID
     Indication: Liver transplant
     Dosage: FREQUENCY : TWICE A DAY;?
     Route: 048
     Dates: start: 20220916
  2. ASPIR-81 TAB EC [Concomitant]
  3. ENVARSUS XR [Concomitant]
     Active Substance: TACROLIMUS
  4. GABAPENTIN TAB [Concomitant]
  5. KEPPRA TAB [Concomitant]
  6. LANTUS INJ [Concomitant]
  7. LOSARTAN POT TAB [Concomitant]
  8. MELATONIN SUB [Concomitant]
  9. NOVOLOG INJ [Concomitant]
  10. OMEPRAZOLE SODIUM [Concomitant]
     Active Substance: OMEPRAZOLE SODIUM
  11. PROCARDIA CAP [Concomitant]
  12. TACROLIMUS [Concomitant]
     Active Substance: TACROLIMUS

REACTIONS (1)
  - Ligament sprain [None]
